FAERS Safety Report 23712726 (Version 1)
Quarter: 2024Q2

REPORT INFORMATION
  Report Type: Spontaneous
  Country: US (occurrence: US)
  Receive Date: 20240405
  Receipt Date: 20240405
  Transmission Date: 20240716
  Serious: Yes (Other)
  Sender: FDA-Public Use
  Company Number: US-BRIAN CONNER SVP QUALITY AND CHIEF COMPLIANCE OFFICER-2024XER00185

PATIENT
  Age: 43 Year
  Sex: Female

DRUGS (1)
  1. RECORLEV [Suspect]
     Active Substance: LEVOKETOCONAZOLE
     Dosage: UNK
     Dates: start: 20240321

REACTIONS (2)
  - Cellulitis [Unknown]
  - Skin lesion [Unknown]

NARRATIVE: CASE EVENT DATE: 20240301
